FAERS Safety Report 16316275 (Version 3)
Quarter: 2019Q2

REPORT INFORMATION
  Report Type: Report from Study
  Country: US (occurrence: US)
  Receive Date: 20190515
  Receipt Date: 20190627
  Transmission Date: 20190711
  Serious: No
  Sender: FDA-Public Use
  Company Number: US-SA-2019SA128615

PATIENT
  Age: 90 Year
  Sex: Female

DRUGS (2)
  1. ALIROCUMAB [Suspect]
     Active Substance: ALIROCUMAB
     Indication: BLOOD CHOLESTEROL
     Dosage: 75 MG, QOW
     Route: 058
     Dates: start: 20190218
  2. ALIROCUMAB [Suspect]
     Active Substance: ALIROCUMAB
     Dosage: UNK, QOW
     Dates: start: 20190426

REACTIONS (5)
  - Injection site bruising [Unknown]
  - Product dose omission [Unknown]
  - Device use issue [Unknown]
  - Injection site discomfort [Unknown]
  - Injection site discolouration [Unknown]
